FAERS Safety Report 16878045 (Version 8)
Quarter: 2020Q1

REPORT INFORMATION
  Report Type: Spontaneous
  Country: US (occurrence: US)
  Receive Date: 20191002
  Receipt Date: 20200320
  Transmission Date: 20200409
  Serious: Yes (Disabling, Other)
  Sender: FDA-Public Use
  Company Number: US-REGENERON PHARMACEUTICALS, INC.-2019-55290

PATIENT

DRUGS (17)
  1. EYLEA [Suspect]
     Active Substance: AFLIBERCEPT
     Dosage: 2 MG, Q8W, AFTER THE EVENTS
     Route: 031
     Dates: start: 20200122
  2. EYLEA [Suspect]
     Active Substance: AFLIBERCEPT
     Indication: CHOROIDAL NEOVASCULARISATION
     Dosage: 2 MG, Q8W, LEFT EYE
     Route: 031
     Dates: start: 201907, end: 201907
  3. VERAPAMIL HCL [Concomitant]
     Active Substance: VERAPAMIL HYDROCHLORIDE
     Indication: PRODUCT USED FOR UNKNOWN INDICATION
     Dosage: 40 MG, QD
  4. IRBESARTAN. [Concomitant]
     Active Substance: IRBESARTAN
     Indication: PRODUCT USED FOR UNKNOWN INDICATION
     Dosage: 150 MG, BID
  5. PRAVASTATIN SODIUM. [Concomitant]
     Active Substance: PRAVASTATIN SODIUM
     Indication: PRODUCT USED FOR UNKNOWN INDICATION
     Dosage: 40 MG, EVERY OTHER DAY
  6. EYLEA [Suspect]
     Active Substance: AFLIBERCEPT
     Indication: NEOVASCULAR AGE-RELATED MACULAR DEGENERATION
     Dosage: 2 MG, Q8W
     Route: 031
     Dates: start: 2018, end: 20191223
  7. EYLEA [Suspect]
     Active Substance: AFLIBERCEPT
     Dosage: 2 MG, Q8W, LEFT EYE
     Route: 031
     Dates: start: 20191023, end: 20191023
  8. EYLEA [Suspect]
     Active Substance: AFLIBERCEPT
     Dosage: 2 MG, Q8W, RIGHT EYE, LAST DOSE
     Route: 031
     Dates: start: 20191223, end: 20191223
  9. LATANOPROST. [Suspect]
     Active Substance: LATANOPROST
     Dosage: 0.005 %, 1 DROP INTO BOTH EYES AT BEDTIME
     Dates: start: 20190912, end: 20190912
  10. VERAPAMIL HCL [Concomitant]
     Active Substance: VERAPAMIL HYDROCHLORIDE
     Dosage: 80 MG, UNK
  11. CORTISONE [Concomitant]
     Active Substance: CORTISONE
     Indication: PRODUCT USED FOR UNKNOWN INDICATION
  12. METOPROLOL TARTRATE. [Concomitant]
     Active Substance: METOPROLOL TARTRATE
     Indication: PRODUCT USED FOR UNKNOWN INDICATION
     Dosage: 100 MG, QD
  13. NORTRIPTYLINE HYDROCHLORIDE. [Concomitant]
     Active Substance: NORTRIPTYLINE HYDROCHLORIDE
     Indication: PRODUCT USED FOR UNKNOWN INDICATION
     Dosage: 25 MG, BID
  14. EYLEA [Suspect]
     Active Substance: AFLIBERCEPT
     Dosage: 2 MG, Q8W, RIGHT EYE
     Route: 031
     Dates: start: 20190827, end: 20190827
  15. EYLEA [Suspect]
     Active Substance: AFLIBERCEPT
     Dosage: 2 MG, Q8W, RIGHT EYE
     Route: 031
     Dates: start: 20191022, end: 20191022
  16. LATANOPROST. [Suspect]
     Active Substance: LATANOPROST
     Indication: DRY EYE
     Dosage: 0.005 %, 1 DROP INTO BOTH EYES AT BEDTIME
  17. ALPRAZOLAM. [Concomitant]
     Active Substance: ALPRAZOLAM
     Indication: PRODUCT USED FOR UNKNOWN INDICATION
     Dosage: 0.25 MG, AS NEEDED

REACTIONS (9)
  - Non-infectious endophthalmitis [Recovered/Resolved]
  - Vitreous degeneration [Unknown]
  - Eye irritation [Unknown]
  - Endophthalmitis [Recovered/Resolved]
  - Rotator cuff syndrome [Unknown]
  - Corneal oedema [Unknown]
  - Blindness transient [Recovered/Resolved]
  - Type IIa hyperlipidaemia [Unknown]
  - Eye inflammation [Unknown]

NARRATIVE: CASE EVENT DATE: 2019
